FAERS Safety Report 19782438 (Version 1)
Quarter: 2021Q3

REPORT INFORMATION
  Report Type: Spontaneous
  Country: JP (occurrence: JP)
  Receive Date: 20210902
  Receipt Date: 20210902
  Transmission Date: 20211014
  Serious: Yes (Other)
  Sender: FDA-Public Use
  Company Number: JP-BIOCRYST-2021BCR00356

PATIENT
  Age: 41 Year
  Sex: Female

DRUGS (10)
  1. GENINAX [Suspect]
     Active Substance: GARENOXACIN MESYLATE
  2. COLDRIN [Suspect]
     Active Substance: ACETAMINOPHEN\PSEUDOEPHEDRINE HYDROCHLORIDE
  3. CRAVIT [Suspect]
     Active Substance: LEVOFLOXACIN
     Dosage: UNK
  4. DALACIN?S [Suspect]
     Active Substance: CLINDAMYCIN
  5. RAPIACTA [Suspect]
     Active Substance: PERAMIVIR
     Dosage: UNK
     Dates: start: 201612, end: 201612
  6. FLOMOX [CEFCAPENE PIVOXIL HYDROCHLORIDE] [Suspect]
     Active Substance: CEFCAPENE PIVOXIL HYDROCHLORIDE
     Dosage: UNK
     Dates: start: 201612, end: 201612
  7. COUGHCODE?N [Suspect]
     Active Substance: ACETAMINOPHEN\BROMISOVAL\DIHYDROCODEINE PHOSPHATE\DIPHENHYDRAMINE SALICYLATE\DYPHYLLINE\METHYLEPHEDRINE HYDROCHLORIDE, (+/-)-
  8. TSUMURA BAKUMONDOTO EXTRACT GRANULES FOR ETHICAL USE [Suspect]
     Active Substance: HERBALS
  9. MUCODYNE [Suspect]
     Active Substance: CARBOCYSTEINE
  10. MINOMYCIN [Suspect]
     Active Substance: MINOCYCLINE HYDROCHLORIDE

REACTIONS (2)
  - Interstitial lung disease [Unknown]
  - Erythema multiforme [Unknown]
